FAERS Safety Report 9708593 (Version 1)
Quarter: 2013Q4

REPORT INFORMATION
  Report Type: Spontaneous
  Country: FR (occurrence: FR)
  Receive Date: 20131125
  Receipt Date: 20131125
  Transmission Date: 20140711
  Serious: Yes (Death)
  Sender: FDA-Public Use
  Company Number: PHHY2013FR134551

PATIENT
  Age: 35 Year
  Sex: Female

DRUGS (4)
  1. RITALINE LP [Suspect]
     Indication: SUICIDE ATTEMPT
     Dosage: 30 MG, QD
     Route: 048
     Dates: start: 20130919, end: 20130919
  2. VERAPAMIL HCL [Suspect]
     Indication: SUICIDE ATTEMPT
     Dosage: 120 DF (28800 MG), QD
     Route: 048
     Dates: start: 20130919, end: 20130919
  3. SERESTA [Suspect]
     Indication: SUICIDE ATTEMPT
     Dosage: 30 DF, QD
     Route: 048
     Dates: start: 20130919, end: 20130919
  4. SOLUPRED [Suspect]
     Indication: SUICIDE ATTEMPT
     Dosage: 10 DF, QD
     Route: 048
     Dates: start: 20130919, end: 20130919

REACTIONS (5)
  - Cardiogenic shock [Fatal]
  - Shock [Fatal]
  - Conduction disorder [Fatal]
  - Atrioventricular block complete [Fatal]
  - Hypotension [Fatal]
